FAERS Safety Report 15547819 (Version 9)
Quarter: 2019Q1

REPORT INFORMATION
  Report Type: Report from Study
  Country: US (occurrence: US)
  Receive Date: 20181024
  Receipt Date: 20190308
  Transmission Date: 20190417
  Serious: Yes (Death, Hospitalization)
  Sender: FDA-Public Use
  Company Number: US-ACTELION-A-US2018-177750

PATIENT
  Age: 59 Year
  Sex: Female
  Weight: 125.62 kg

DRUGS (4)
  1. REMODULIN [Suspect]
     Active Substance: TREPROSTINIL
     Indication: PRODUCT USED FOR UNKNOWN INDICATION
     Dosage: UNK
     Route: 065
  2. TYVASO [Concomitant]
     Active Substance: TREPROSTINIL
  3. OPSUMIT [Suspect]
     Active Substance: MACITENTAN
     Indication: PULMONARY HYPERTENSION
     Dosage: 10 MG, QD
     Route: 048
  4. OFEV [Concomitant]
     Active Substance: NINTEDANIB

REACTIONS (13)
  - Cardiac failure congestive [Unknown]
  - Fluid overload [Unknown]
  - Therapy change [Unknown]
  - Terminal state [Unknown]
  - Diarrhoea [Recovering/Resolving]
  - Dyspnoea [Unknown]
  - Hypoxia [Unknown]
  - Emergency care [Unknown]
  - Pulmonary arterial hypertension [Unknown]
  - Nausea [Unknown]
  - Death [Fatal]
  - Cardiac failure [Unknown]
  - Oxygen saturation decreased [Unknown]

NARRATIVE: CASE EVENT DATE: 20190305
